FAERS Safety Report 8793936 (Version 5)
Quarter: 2012Q4

REPORT INFORMATION
  Report Type: 
  Country: US (occurrence: US)
  Receive Date: 20120917
  Receipt Date: 20121212
  Transmission Date: 20130627
  Serious: Yes (Hospitalization, Other)
  Sender: FDA-Public Use
  Company Number: US-009507513-1209USA003332

PATIENT

DRUGS (6)
  1. FOSAMAX [Suspect]
     Indication: OSTEOPENIA
     Dosage: 10 mg, qd
     Route: 048
     Dates: start: 19990104
  2. FOSAMAX [Suspect]
     Dosage: 70 mg weekly
     Route: 048
     Dates: start: 200007, end: 20080220
  3. CALCIUM (UNSPECIFIED) [Concomitant]
     Dosage: 600 mg, tid
     Dates: start: 1999
  4. VITAMIN D (UNSPECIFIED) [Concomitant]
     Dosage: UNK
     Dates: start: 1999
  5. ALENDRONATE SODIUM [Suspect]
     Indication: OSTEOPENIA
     Dosage: 70 mg weekly
     Route: 048
     Dates: start: 20080228, end: 20101021
  6. SELECTIVE ESTROGEN RECEPTOR MODULATOR (UNSPECIFIED) [Concomitant]
     Dosage: UNK
     Dates: start: 1999, end: 2000

REACTIONS (35)
  - Fall [Unknown]
  - Pathological fracture [Recovered/Resolved]
  - Low turnover osteopathy [Unknown]
  - Tooth extraction [Unknown]
  - Tooth disorder [Unknown]
  - Tooth disorder [Unknown]
  - Tooth disorder [Unknown]
  - Endodontic procedure [Unknown]
  - Internal fixation of fracture [Unknown]
  - Infection [Unknown]
  - Tooth extraction [Unknown]
  - Tooth extraction [Unknown]
  - Tooth disorder [Unknown]
  - Tooth disorder [Unknown]
  - Rectal adenocarcinoma [Unknown]
  - Cholecystectomy [Unknown]
  - Colectomy [Unknown]
  - Oophorectomy bilateral [Unknown]
  - Cholecystitis [Unknown]
  - Cholelithiasis [Unknown]
  - Rectal haemorrhage [Unknown]
  - Fall [Unknown]
  - Epistaxis [Not Recovered/Not Resolved]
  - Hearing impaired [Unknown]
  - Gastrooesophageal reflux disease [Unknown]
  - Osteoarthritis [Unknown]
  - Drug hypersensitivity [Unknown]
  - Constipation [Not Recovered/Not Resolved]
  - Post herpetic neuralgia [Recovered/Resolved]
  - Herpes virus infection [Unknown]
  - Hypercholesterolaemia [Unknown]
  - Hepatitis [Unknown]
  - Liver function test abnormal [Unknown]
  - Anaemia postoperative [Unknown]
  - Transfusion [Unknown]
